FAERS Safety Report 8897365 (Version 1)
Quarter: 2012Q4

REPORT INFORMATION
  Report Type: 
  Country: US (occurrence: US)
  Receive Date: 20121108
  Receipt Date: 20121108
  Transmission Date: 20130627
  Serious: No
  Sender: FDA-Public Use
  Company Number: US-AMGEN-USASP2012026163

PATIENT
  Sex: Female

DRUGS (1)
  1. ENBREL [Suspect]
     Indication: ANKYLOSING SPONDYLITIS
     Dosage: 50 mg, qwk
     Dates: start: 20030101, end: 201112

REACTIONS (3)
  - Ankylosing spondylitis [Recovered/Resolved]
  - Back disorder [Not Recovered/Not Resolved]
  - Nasopharyngitis [Recovered/Resolved]
